FAERS Safety Report 10147064 (Version 1)
Quarter: 2014Q2

REPORT INFORMATION
  Report Type: Spontaneous
  Country: US (occurrence: US)
  Receive Date: 20140501
  Receipt Date: 20140501
  Transmission Date: 20141212
  Serious: No
  Sender: FDA-Public Use
  Company Number: US-PFIZER INC-2014120315

PATIENT
  Age: 60 Year
  Sex: Female
  Weight: 80.73 kg

DRUGS (2)
  1. LYRICA [Suspect]
     Indication: NEUROPATHY PERIPHERAL
     Dosage: 150 MG, 2X/DAY
     Dates: start: 201001
  2. HYDROCODONE [Concomitant]
     Indication: PAIN
     Dosage: ^10/325MG^ TWO TIMES A DAY

REACTIONS (1)
  - Weight increased [Unknown]
